FAERS Safety Report 14929662 (Version 1)
Quarter: 2018Q2

REPORT INFORMATION
  Report Type: Spontaneous
  Country: US (occurrence: US)
  Receive Date: 20180504
  Receipt Date: 20180504
  Transmission Date: 20180711
  Serious: Yes (Hospitalization)
  Sender: FDA-Public Use
  Company Number: None

PATIENT
  Age: 29 Year
  Sex: Female

DRUGS (6)
  1. PROMETHAZINE [Concomitant]
     Active Substance: PROMETHAZINE\PROMETHAZINE HYDROCHLORIDE
  2. IBUPROFEN. [Concomitant]
     Active Substance: IBUPROFEN
  3. JADENU [Suspect]
     Active Substance: DEFERASIROX
     Indication: CHELATION THERAPY
     Route: 048
     Dates: start: 20160227
  4. JADENU [Suspect]
     Active Substance: DEFERASIROX
  5. OXYCODONE [Concomitant]
     Active Substance: OXYCODONE
  6. AMOX. K CLAV [Concomitant]

REACTIONS (3)
  - Feeling cold [None]
  - Body temperature fluctuation [None]
  - Feeling hot [None]

NARRATIVE: CASE EVENT DATE: 20180427
